FAERS Safety Report 12003915 (Version 3)
Quarter: 2016Q2

REPORT INFORMATION
  Report Type: Report from Study
  Country: US (occurrence: US)
  Receive Date: 20160204
  Receipt Date: 20160518
  Transmission Date: 20160815
  Serious: Yes (Other)
  Sender: FDA-Public Use
  Company Number: US-TAKEDA-2016TUS001762

PATIENT
  Sex: Male
  Weight: 63.49 kg

DRUGS (2)
  1. VEDOLIZUMAB [Suspect]
     Active Substance: VEDOLIZUMAB
     Indication: COLITIS ULCERATIVE
     Dosage: UNK
     Route: 065
     Dates: start: 2015, end: 201504
  2. VEDOLIZUMAB [Suspect]
     Active Substance: VEDOLIZUMAB
     Indication: CROHN^S DISEASE

REACTIONS (2)
  - Surgery [Unknown]
  - Drug ineffective [Unknown]

NARRATIVE: CASE EVENT DATE: 2015
